FAERS Safety Report 24631843 (Version 2)
Quarter: 2024Q4

REPORT INFORMATION
  Report Type: Report from Study
  Country: DE (occurrence: DE)
  Receive Date: 20241118
  Receipt Date: 20241209
  Transmission Date: 20250115
  Serious: Yes (Hospitalization)
  Sender: ABBVIE
  Company Number: DE-ABBVIE-6008508

PATIENT
  Sex: Female

DRUGS (1)
  1. FOSCARBIDOPA\FOSLEVODOPA [Suspect]
     Active Substance: FOSCARBIDOPA\FOSLEVODOPA
     Indication: Parkinson^s disease
     Dosage: CRN: 0.38 ML/H; CR: 0.47 ML/H; CRH: 0.48 ML/H; ED: 0.25
     Route: 058
     Dates: end: 20241005

REACTIONS (3)
  - Headache [Unknown]
  - Infusion site induration [Unknown]
  - Infusion site erythema [Unknown]
